FAERS Safety Report 7590807-4 (Version None)
Quarter: 2011Q3

REPORT INFORMATION
  Report Type: 
  Country: None (occurrence: None)
  Receive Date: 20110705
  Receipt Date: 20110621
  Transmission Date: 20111222
  Serious: Yes (Other)
  Sender: FDA-Public Use
  Company Number: PHHY2011FR46195

PATIENT
  Sex: Female
  Weight: 55 kg

DRUGS (5)
  1. ZOLEDRONIC ACID [Suspect]
     Indication: OSTEOPOROSIS
     Dosage: 5 MG, UNK
     Route: 042
     Dates: start: 20101119
  2. AVONEX [Concomitant]
     Dosage: PER WEEK
  3. LYRICA [Concomitant]
     Dosage: 300 MG
  4. GUTRON [Concomitant]
     Dosage: 2.5 MG 6 QD
  5. OMEPRAZOLE [Concomitant]
     Dosage: 20 MG/DAY

REACTIONS (1)
  - MULTIPLE SCLEROSIS RELAPSE [None]
